FAERS Safety Report 25850653 (Version 1)
Quarter: 2025Q3

REPORT INFORMATION
  Report Type: Spontaneous
  Country: US (occurrence: US)
  Receive Date: 20250926
  Receipt Date: 20250926
  Transmission Date: 20251021
  Serious: Yes (Other)
  Sender: STRIDES
  Company Number: US-STRIDES ARCOLAB LIMITED-2024SP014207

PATIENT
  Age: 22 Year
  Sex: Female

DRUGS (20)
  1. METOCLOPRAMIDE [Suspect]
     Active Substance: METOCLOPRAMIDE
     Indication: Nausea
     Route: 065
  2. METOCLOPRAMIDE [Suspect]
     Active Substance: METOCLOPRAMIDE
     Indication: Vomiting
  3. METOCLOPRAMIDE [Suspect]
     Active Substance: METOCLOPRAMIDE
     Indication: Abdominal distension
  4. METOCLOPRAMIDE [Suspect]
     Active Substance: METOCLOPRAMIDE
     Indication: Abdominal pain
  5. ERYTHROMYCIN [Suspect]
     Active Substance: ERYTHROMYCIN
     Indication: Nausea
     Route: 065
  6. ERYTHROMYCIN [Suspect]
     Active Substance: ERYTHROMYCIN
     Indication: Vomiting
  7. ERYTHROMYCIN [Suspect]
     Active Substance: ERYTHROMYCIN
     Indication: Abdominal distension
  8. ERYTHROMYCIN [Suspect]
     Active Substance: ERYTHROMYCIN
     Indication: Abdominal pain
  9. PROCHLORPERAZINE [Suspect]
     Active Substance: PROCHLORPERAZINE
     Indication: Nausea
     Route: 065
  10. PROCHLORPERAZINE [Suspect]
     Active Substance: PROCHLORPERAZINE
     Indication: Vomiting
  11. PROCHLORPERAZINE [Suspect]
     Active Substance: PROCHLORPERAZINE
     Indication: Abdominal distension
  12. PROCHLORPERAZINE [Suspect]
     Active Substance: PROCHLORPERAZINE
     Indication: Abdominal pain
  13. ONDANSETRON [Suspect]
     Active Substance: ONDANSETRON
     Indication: Nausea
     Route: 065
  14. ONDANSETRON [Suspect]
     Active Substance: ONDANSETRON
     Indication: Vomiting
  15. ONDANSETRON [Suspect]
     Active Substance: ONDANSETRON
     Indication: Abdominal distension
  16. ONDANSETRON [Suspect]
     Active Substance: ONDANSETRON
     Indication: Abdominal pain
  17. DOMPERIDONE [Suspect]
     Active Substance: DOMPERIDONE
     Indication: Nausea
     Route: 065
  18. DOMPERIDONE [Suspect]
     Active Substance: DOMPERIDONE
     Indication: Vomiting
  19. DOMPERIDONE [Suspect]
     Active Substance: DOMPERIDONE
     Indication: Abdominal distension
  20. DOMPERIDONE [Suspect]
     Active Substance: DOMPERIDONE
     Indication: Abdominal pain

REACTIONS (1)
  - Therapy non-responder [Unknown]
